FAERS Safety Report 7443869-9 (Version None)
Quarter: 2011Q2

REPORT INFORMATION
  Report Type: 
  Country: None (occurrence: None)
  Receive Date: 20110428
  Receipt Date: 20090316
  Transmission Date: 20111010
  Serious: Yes (Hospitalization, Other)
  Sender: FDA-Public Use
  Company Number: US-BAYER-200916289NA

PATIENT
  Age: 53 Year
  Sex: Female
  Weight: 126.98 kg

DRUGS (50)
  1. TRASYLOL [Suspect]
     Dosage: 200 ML, BOLUS
     Route: 040
     Dates: start: 20020426, end: 20020426
  2. ACETYLSALICYLIC ACID SRT [Concomitant]
     Dosage: 325 MG, QD
     Route: 048
     Dates: start: 20020209, end: 20020426
  3. CLONIDINE [Concomitant]
     Dosage: 0.2 MG, BID
     Route: 048
     Dates: start: 20020209
  4. CELEBREX [Concomitant]
     Indication: BACK PAIN
     Dosage: UNK
     Route: 048
     Dates: start: 20000101
  5. ANCEF [Concomitant]
     Indication: ANTIBIOTIC PROPHYLAXIS
     Dosage: 1 G, UNK
     Route: 042
     Dates: start: 20020426, end: 20020426
  6. MORPHINE [Concomitant]
     Dosage: 2
     Route: 042
     Dates: start: 20020426
  7. METOPROLOL [Concomitant]
     Dosage: 50 MG, BID
     Route: 048
  8. NIPRIDE [Concomitant]
     Indication: BLOOD PRESSURE MANAGEMENT
     Dosage: INFUSION
     Dates: start: 20020426
  9. VASOTEC [Concomitant]
     Dosage: UNK
     Dates: start: 20020426
  10. OMNIPAQUE 140 [Concomitant]
     Dosage: 245 ML, UNK
     Dates: start: 20020425
  11. ZESTRIL [Concomitant]
     Indication: HYPERTENSION
     Dosage: UNK
     Route: 048
     Dates: start: 19950101
  12. IBUPROFEN [Concomitant]
     Dosage: UNK
     Route: 048
     Dates: start: 19950101
  13. NITROGLYCERIN [Concomitant]
     Dosage: 15 CC PER HOUR
     Route: 042
     Dates: start: 20020425
  14. MOTRIN [Concomitant]
     Indication: BACK PAIN
     Dosage: UNK
     Route: 048
     Dates: start: 19950101
  15. INTEGRILIN [Concomitant]
     Dosage: 20 ML PER HOUR
     Route: 042
     Dates: start: 20020204, end: 20020207
  16. ACCUPRIL [Concomitant]
     Dosage: 40 MG, UNK
     Route: 048
     Dates: start: 20020209
  17. LOPRESSOR [Concomitant]
     Dosage: 50 MG, BID
     Route: 048
     Dates: start: 20020209
  18. PRINIVIL [Concomitant]
     Dosage: 40 MG DAILLY
     Dates: start: 20020425
  19. PLAVIX [Concomitant]
     Dosage: 75 MG, QD
     Route: 048
     Dates: start: 20020209, end: 20020426
  20. NITROGLYCERIN [Concomitant]
     Dosage: 50 MCG PER MINUTE
     Route: 042
     Dates: start: 20020426
  21. CARDIZEM [Concomitant]
     Dosage: 15 MG, UNK
     Dates: start: 20020426
  22. FRESH FROZEN PLASMA [Concomitant]
     Dosage: 2 U, PEROPERATIVE
     Dates: start: 20020426
  23. BLOOD AND RELATED PRODUCTS [Concomitant]
     Dosage: 2 U, PER OPERATIVE
     Dates: start: 20020426
  24. INTEGRILIN [Concomitant]
     Dosage: UNK
     Route: 042
     Dates: start: 20020312, end: 20020312
  25. PROTAMINE SULFATE [Concomitant]
     Indication: COAGULATION TIME SHORTENED
     Dosage: MEDICATION DURING SURGERY
  26. AMIDATE [Concomitant]
     Dosage: 25 MG, UNK
     Dates: start: 20020426
  27. LASIX [Concomitant]
     Indication: HYPERTENSION
     Dosage: 40 MG, QD
     Route: 048
     Dates: start: 19950101
  28. IBUPROFEN [Concomitant]
     Indication: BACK PAIN
     Dosage: UNK
     Dates: start: 20000101
  29. NITROGLYCERIN [Concomitant]
     Dosage: 50 MCG PER MINUTE
     Route: 042
     Dates: start: 20020426
  30. HEPARIN [Concomitant]
     Dosage: 10000 U, UNK
     Route: 042
     Dates: start: 20020426
  31. LOVENOX [Concomitant]
     Dosage: UNK
     Route: 058
     Dates: end: 20020208
  32. TRASYLOL [Suspect]
     Dosage: 50 CC PER HOUR IV DRIP, 200 CC BOLUS (TOTAL 600 CC DOSE)
     Route: 041
     Dates: start: 20020426, end: 20020426
  33. LACTATED RINGER'S [Concomitant]
     Dosage: 500 ML, UNK
     Route: 040
     Dates: start: 20020426
  34. ALDOMET [METHYLDOPATE HYDROCHLORIDE] [Concomitant]
     Dosage: 500 MG, TID
     Route: 048
     Dates: start: 20020209
  35. TRASYLOL [Suspect]
     Indication: CORONARY ARTERY BYPASS
     Dosage: 200 ML, BOLUS OVER ONE HOUR LOADING DOSE
     Route: 040
     Dates: start: 20020426, end: 20020426
  36. IMDUR [Concomitant]
     Dosage: 60 MG, QD
     Route: 048
     Dates: start: 20020209
  37. TOPROL-XL [Concomitant]
     Dosage: 100 MG, QD
     Route: 048
     Dates: start: 20020313
  38. NITROGLYCERIN [Concomitant]
     Dosage: 60 MCG PER MINUTE
     Route: 042
     Dates: start: 20020426
  39. PLATELETS [Concomitant]
     Dosage: 2 U, PEROPERATIVE
     Dates: start: 20020426
  40. DIPRIVAN [Concomitant]
     Indication: SEDATION
     Dosage: UNK
     Route: 042
     Dates: start: 20020426, end: 20020426
  41. LABETALOL [Concomitant]
     Dosage: 40 MG, UNK
     Route: 042
     Dates: start: 20020207
  42. LABETALOL [Concomitant]
     Dosage: 10 MG, UNK
     Route: 042
     Dates: start: 20020426
  43. HYPAQUE [MEGLUMINE AMIDOTRIZOATE,SODIUM AMIDOTRIZOATE] [Concomitant]
     Indication: CATHETERISATION CARDIAC
     Dosage: 265 ML, LEFT HEART CATHETERIZATION
     Dates: start: 20020205
  44. LASIX [Concomitant]
     Dosage: 20 MG, UNK
     Route: 042
     Dates: start: 20020426
  45. NORVASC [Concomitant]
     Dosage: 5 MG, QD
     Route: 048
     Dates: start: 20020209
  46. HEPARIN [Concomitant]
     Dosage: 45000 U, UNK
     Dates: start: 20020426
  47. INTEGRILIN [Concomitant]
     Dosage: 11.3 ML TIMES 2, 10 MINUTES APART
     Route: 042
     Dates: start: 20020204, end: 20020207
  48. UNCODEABLE ^UNCLASSIFIABLE^ [Concomitant]
     Dosage: UNK
     Dates: start: 20020426
  49. HYPAQUE [MEGLUMINE AMIDOTRIZOATE,SODIUM AMIDOTRIZOATE] [Concomitant]
     Dosage: 200 ML, PTCA
     Dates: start: 20020207
  50. HYPAQUE [MEGLUMINE AMIDOTRIZOATE,SODIUM AMIDOTRIZOATE] [Concomitant]
     Indication: CORONARY ANGIOPLASTY
     Dosage: 300 ML, CARDIAC CATHETERIZATION
     Dates: start: 20020312

REACTIONS (13)
  - EMOTIONAL DISTRESS [None]
  - STRESS [None]
  - RENAL FAILURE [None]
  - ANXIETY [None]
  - FEAR [None]
  - FATIGUE [None]
  - MYOCARDIAL INFARCTION [None]
  - RENAL INJURY [None]
  - VENTRICULAR TACHYCARDIA [None]
  - PAIN [None]
  - MULTI-ORGAN FAILURE [None]
  - RENAL IMPAIRMENT [None]
  - UNEVALUABLE EVENT [None]
